FAERS Safety Report 8452266-9 (Version None)
Quarter: 2012Q2

REPORT INFORMATION
  Report Type: 
  Country: None (occurrence: None)
  Receive Date: 20120620
  Receipt Date: 20120502
  Transmission Date: 20120825
  Serious: No
  Sender: FDA-Public Use
  Company Number: US-VERTEX PHARMACEUTICALS INC.-AE-2012-004867

PATIENT
  Sex: Male
  Weight: 88.53 kg

DRUGS (6)
  1. INCIVEK [Suspect]
     Indication: HEPATITIS C
     Route: 048
     Dates: start: 20120320
  2. XANAX [Concomitant]
     Indication: ANXIETY
     Route: 048
  3. PEGASYS [Concomitant]
     Indication: HEPATITIS C
     Route: 058
     Dates: start: 20120320
  4. LATUDA [Concomitant]
     Indication: SCHIZOPHRENIA
     Route: 048
     Dates: start: 20120413, end: 20120418
  5. RIBAVIRIN [Concomitant]
     Indication: HEPATITIS C
     Route: 048
     Dates: start: 20120320
  6. ASPIRIN [Concomitant]
     Route: 048

REACTIONS (5)
  - HYPERSOMNIA [None]
  - DYSPNOEA [None]
  - MUSCLE TIGHTNESS [None]
  - CHEST PAIN [None]
  - ABASIA [None]
